FAERS Safety Report 10255145 (Version 2)
Quarter: 2014Q3

REPORT INFORMATION
  Report Type: Spontaneous
  Country: US (occurrence: US)
  Receive Date: 20140624
  Receipt Date: 20140828
  Transmission Date: 20150326
  Serious: No
  Sender: FDA-Public Use
  Company Number: US-PFIZER INC-2014169527

PATIENT
  Age: 73 Year
  Sex: Male
  Weight: 108.39 kg

DRUGS (7)
  1. LYRICA [Suspect]
     Active Substance: PREGABALIN
     Dosage: 150 MG, UNK
  2. LYRICA [Suspect]
     Active Substance: PREGABALIN
     Dosage: 75 MG, 2X/DAY
     Route: 048
     Dates: start: 2013
  3. ATORVASTATIN [Concomitant]
     Active Substance: ATORVASTATIN
     Dosage: 10 MG, 1X/DAY (AT NIGHT)
  4. AMITRIPTYLINE [Concomitant]
     Active Substance: AMITRIPTYLINE
     Dosage: UNK
  5. KLOR-CON [Concomitant]
     Active Substance: POTASSIUM CHLORIDE
     Dosage: 8 MG, UNK
  6. LYRICA [Suspect]
     Active Substance: PREGABALIN
     Dosage: 150 MG, 2X/DAY
     Route: 048
  7. VASOTEC [Concomitant]
     Active Substance: ENALAPRIL MALEATE
     Dosage: 10 MG, UNK

REACTIONS (11)
  - Body mass index increased [Unknown]
  - Pain in extremity [Unknown]
  - Gait disturbance [Unknown]
  - Blood triglycerides increased [Unknown]
  - Visual impairment [Unknown]
  - Pain [Unknown]
  - Myalgia [Unknown]
  - Blood cholesterol increased [Unknown]
  - Drug ineffective [Unknown]
  - Product counterfeit [Unknown]
  - Fatigue [Recovered/Resolved]

NARRATIVE: CASE EVENT DATE: 201406
